FAERS Safety Report 8249773-0 (Version None)
Quarter: 2012Q1

REPORT INFORMATION
  Report Type: 
  Country: None (occurrence: None)
  Receive Date: 20120328
  Receipt Date: 20120320
  Transmission Date: 20120608
  Serious: Yes (Other)
  Sender: FDA-Public Use
  Company Number: TPA2012A01557

PATIENT
  Age: 71 Year
  Sex: Female
  Weight: 145.151 kg

DRUGS (4)
  1. ACTOS [Suspect]
     Indication: TYPE 2 DIABETES MELLITUS
     Dosage: 15 MG, 1 IN 1D, PER ORAL; 15 MG,  1 IN 1 D, PER ORAL
     Route: 048
     Dates: start: 20070101
  2. ACTOS [Suspect]
     Indication: TYPE 2 DIABETES MELLITUS
     Dosage: 15 MG, 1 IN 1D, PER ORAL; 15 MG,  1 IN 1 D, PER ORAL
     Route: 048
     Dates: start: 20060101, end: 20070101
  3. GLIPIZIDE [Concomitant]
  4. JANUVIA [Concomitant]

REACTIONS (4)
  - KNEE ARTHROPLASTY [None]
  - BLISTER [None]
  - ABASIA [None]
  - LYMPHOEDEMA [None]
